FAERS Safety Report 7970865-5 (Version None)
Quarter: 2011Q4

REPORT INFORMATION
  Report Type: 
  Country: None (occurrence: None)
  Receive Date: 20111212
  Receipt Date: 20111205
  Transmission Date: 20120403
  Serious: Yes (Hospitalization, Disabling)
  Sender: FDA-Public Use
  Company Number: GB-GLAXOSMITHKLINE-B0759341A

PATIENT
  Age: 76 Year
  Sex: Male
  Weight: 120 kg

DRUGS (28)
  1. HYDROMOL CREAM [Concomitant]
     Dates: start: 20110824, end: 20110903
  2. RAMIPRIL [Concomitant]
     Dates: start: 20110824
  3. SENNA [Concomitant]
     Dates: start: 20111017
  4. ROPINIROLE [Suspect]
     Dates: start: 20110801
  5. AMOXICILLIN [Concomitant]
     Dates: start: 20110916, end: 20110921
  6. DOXAZOSIN MESYLATE [Concomitant]
     Dates: start: 20110926
  7. TAMSULOSIN HYDROCHLORIDE [Concomitant]
     Dates: start: 20111010
  8. ACETAMINOPHEN AND CODEINE PHOSPHATE [Concomitant]
     Dates: start: 20111017
  9. LACTULOSE [Concomitant]
     Dates: start: 20111017
  10. CARBOCISTEINE [Concomitant]
     Dates: start: 20110627, end: 20110727
  11. INDACATEROL [Concomitant]
     Dates: start: 20110801, end: 20110930
  12. FUROSEMIDE [Concomitant]
     Dates: start: 20110831
  13. ORLISTAT [Concomitant]
     Dates: start: 20110905, end: 20111003
  14. FLOXACILLIN SODIUM [Concomitant]
     Dates: start: 20111003
  15. SOLIFENACIN SUCCINATE [Concomitant]
     Dates: start: 20110509, end: 20110801
  16. BUDESONIDE [Concomitant]
     Dates: start: 20110831, end: 20110901
  17. ALBUTEROL SULFATE AUTOHALER [Concomitant]
     Dates: start: 20110711, end: 20110928
  18. TAMSULOSIN HYDROCHLORIDE [Concomitant]
     Dates: start: 20110801, end: 20110829
  19. SOLIFENACIN SUCCINATE [Concomitant]
     Dates: start: 20110824
  20. PANTOPRAZOLE [Concomitant]
     Dates: start: 20110905
  21. HYOSCINE HYDROBROMIDE [Concomitant]
     Dates: start: 20110912
  22. CETIRIZINE HCL [Concomitant]
     Dates: start: 20110509, end: 20110801
  23. QUININE [Concomitant]
     Dates: start: 20110801, end: 20110928
  24. CARBOCISTEINE [Concomitant]
     Dates: start: 20110824, end: 20110923
  25. DEPO-MEDROL [Concomitant]
     Dates: start: 20110831, end: 20110901
  26. ORLISTAT [Concomitant]
     Dates: start: 20110711, end: 20110808
  27. CHLORHEXIDINE GLUCONATE [Concomitant]
     Dates: start: 20110714, end: 20110728
  28. CARBOCISTEINE [Concomitant]
     Dates: start: 20111010

REACTIONS (2)
  - DYSKINESIA [None]
  - TARDIVE DYSKINESIA [None]
